FAERS Safety Report 10472844 (Version 1)
Quarter: 2014Q3

REPORT INFORMATION
  Report Type: Spontaneous
  Country: US (occurrence: None)
  Receive Date: 20140923
  Receipt Date: 20140923
  Transmission Date: 20150326
  Serious: Yes (Life-Threatening)
  Sender: FDA-Public Use
  Company Number: None

PATIENT
  Sex: Male

DRUGS (7)
  1. SIROLIMUS. [Suspect]
     Active Substance: SIROLIMUS
  2. COMPAZINE [Suspect]
     Active Substance: PROCHLORPERAZINE MALEATE
  3. GEMZAR [Suspect]
     Active Substance: GEMCITABINE HYDROCHLORIDE
     Indication: CHOLANGIOCARCINOMA
     Dates: start: 20140915
  4. KYTRIL [Suspect]
     Active Substance: GRANISETRON HYDROCHLORIDE
  5. CISPLATIN. [Suspect]
     Active Substance: CISPLATIN
     Indication: CHOLANGIOCARCINOMA
     Dates: start: 20140915
  6. LORAZEPAM. [Suspect]
     Active Substance: LORAZEPAM
  7. DEXAMETHASONE. [Suspect]
     Active Substance: DEXAMETHASONE

REACTIONS (2)
  - Neutrophil count decreased [None]
  - White blood cell count decreased [None]

NARRATIVE: CASE EVENT DATE: 20140922
